FAERS Safety Report 7481009-0 (Version None)
Quarter: 2011Q2

REPORT INFORMATION
  Report Type: 
  Country: None (occurrence: None)
  Receive Date: 20110516
  Receipt Date: 20110512
  Transmission Date: 20111010
  Serious: Yes (Hospitalization)
  Sender: FDA-Public Use
  Company Number: IT-BRISTOL-MYERS SQUIBB COMPANY-15738933

PATIENT
  Sex: Male

DRUGS (1)
  1. ENTECAVIR [Suspect]

REACTIONS (1)
  - PANCYTOPENIA [None]
